FAERS Safety Report 8872101 (Version 1)
Quarter: 2012Q4

REPORT INFORMATION
  Report Type: 
  Country: US (occurrence: US)
  Receive Date: 20121023
  Receipt Date: 20121023
  Transmission Date: 20130627
  Serious: No
  Sender: FDA-Public Use
  Company Number: US-ASTELLAS-2011US005082

PATIENT
  Age: 51 Year
  Sex: Female

DRUGS (5)
  1. PROGRAF [Suspect]
     Indication: LIVER TRANSPLANT
     Dosage: 12 mg, bid
     Route: 065
  2. PROGRAF [Suspect]
     Dosage: 10 mg, bid
     Route: 065
  3. PROGRAF [Suspect]
     Dosage: 6 mg, Unknown/D
     Route: 065
     Dates: start: 20101231
  4. TACROLIMUS [Suspect]
     Indication: LIVER TRANSPLANT
     Dosage: UNK
     Route: 065
  5. CELLCEPT                           /01275102/ [Concomitant]
     Indication: LIVER TRANSPLANT
     Dosage: UNK mg, Unknown/D
     Route: 065

REACTIONS (7)
  - Erythema [Not Recovered/Not Resolved]
  - Blood magnesium decreased [Not Recovered/Not Resolved]
  - Fatigue [Not Recovered/Not Resolved]
  - Muscular weakness [Unknown]
  - Tremor [Unknown]
  - Initial insomnia [Recovered/Resolved]
  - Myalgia [Recovering/Resolving]
